FAERS Safety Report 13759068 (Version 1)
Quarter: 2017Q3

REPORT INFORMATION
  Report Type: Spontaneous
  Country: FR (occurrence: FR)
  Receive Date: 20170717
  Receipt Date: 20170717
  Transmission Date: 20171127
  Serious: Yes (Other)
  Sender: FDA-Public Use
  Company Number: FR-TEVA-786078ROM

PATIENT
  Age: 69 Year
  Sex: Female

DRUGS (4)
  1. FLUOROURACIL. [Suspect]
     Active Substance: FLUOROURACIL
     Indication: ADENOCARCINOMA OF COLON
     Dosage: 4 COURSES OF FOLFOX PROTOCOL
     Route: 042
     Dates: start: 201512, end: 20160308
  2. OXALIPLATIN. [Suspect]
     Active Substance: OXALIPLATIN
     Indication: ADENOCARCINOMA OF COLON
     Dosage: 85 MG/M2 DAILY; 4 COURSES OF FOLFOX PROTOCOL AND 4 COURSES OF TOMOX PROTOCOL
     Dates: start: 201512, end: 20160606
  3. TEVAGRASTIM [Suspect]
     Active Substance: FILGRASTIM
     Indication: NEUTROPENIA
     Dosage: 2 DOSAGE FORMS DAILY;
     Route: 042
     Dates: start: 20160309, end: 20160607
  4. TOMUDEX [Suspect]
     Active Substance: RALTITREXED
     Indication: ADENOCARCINOMA OF COLON
     Dosage: 3.7 MILLIGRAM DAILY; 4 COURSES OF TOMOX PROTOCOL
     Route: 042
     Dates: start: 20160405, end: 20160606

REACTIONS (1)
  - Chronic myeloid leukaemia [Not Recovered/Not Resolved]

NARRATIVE: CASE EVENT DATE: 201701
